FAERS Safety Report 13617807 (Version 2)
Quarter: 2017Q3

REPORT INFORMATION
  Report Type: Spontaneous
  Country: US (occurrence: US)
  Receive Date: 20170606
  Receipt Date: 20170802
  Transmission Date: 20171127
  Serious: Yes (Hospitalization, Other)
  Sender: FDA-Public Use
  Company Number: US-SMITH AND NEPHEW, INC-2017SMT00402

PATIENT
  Age: 77 Year
  Sex: Male
  Weight: 85.26 kg

DRUGS (4)
  1. REGRANEX [Suspect]
     Active Substance: BECAPLERMIN
     Dosage: UNK, 1X/DAY AS ABLE
     Route: 061
     Dates: start: 2017, end: 2017
  2. UNSPECIFIED DIABETES MELLITIS MEDICATIONS [Concomitant]
  3. REGRANEX [Suspect]
     Active Substance: BECAPLERMIN
     Indication: ULCER
     Dosage: UNK, 2X/DAY
     Route: 061
     Dates: start: 201705, end: 2017
  4. UNSPECIFIED ^HOME^ MEDICATIONS [Concomitant]

REACTIONS (3)
  - Inappropriate schedule of drug administration [Recovered/Resolved]
  - Cellulitis [Recovered/Resolved]
  - Agitation [Unknown]

NARRATIVE: CASE EVENT DATE: 2017
